FAERS Safety Report 16265228 (Version 13)
Quarter: 2020Q4

REPORT INFORMATION
  Report Type: Report from Study
  Country: NL (occurrence: NL)
  Receive Date: 20190502
  Receipt Date: 20201013
  Transmission Date: 20210113
  Serious: Yes (Other)
  Sender: FDA-Public Use
  Company Number: NL-AMGEN-NLDSL2019066683

PATIENT
  Age: 70 Year
  Sex: Female

DRUGS (15)
  1. OMEPRAZOL [OMEPRAZOLE] [Concomitant]
     Active Substance: OMEPRAZOLE
     Dosage: 20 MILLIGRAM, QD
  2. TRIAMCINOLONACETONIDE [Concomitant]
     Active Substance: TRIAMCINOLONE ACETONIDE
     Dosage: UNK UNK, QD
  3. LETROZOL [Concomitant]
     Active Substance: LETROZOLE
     Dosage: 2.5 MILLIGRAM, QD
  4. XGEVA [Suspect]
     Active Substance: DENOSUMAB
     Indication: PROPHYLAXIS
     Dosage: 120 MILLIGRAM/1,7ML, Q4WK
     Route: 058
     Dates: start: 20190423
  5. LIDOCAINE. [Concomitant]
     Active Substance: LIDOCAINE
     Dosage: UNK UNK, QD
     Route: 054
  6. ROSUVASTATINE [ROSUVASTATIN] [Suspect]
     Active Substance: ROSUVASTATIN
     Indication: PRODUCT USED FOR UNKNOWN INDICATION
     Dosage: 20 MILLIGRAM, QD, (AS CA-SALT), 1D1T
     Route: 065
  7. CALCIUM CARBONATE W/COLECALCIFEROL [Concomitant]
     Active Substance: CALCIUM CARBONATE\CHOLECALCIFEROL
     Dosage: 1.25 800IE (500MG CA), QD
  8. MIZOLASTINE [Concomitant]
     Active Substance: MIZOLASTINE
     Dosage: 10 MILLIGRAM, QD
  9. MICONAZOL [Concomitant]
     Active Substance: MICONAZOLE NITRATE
     Dosage: 20 MILLIGRAM PER GRAM, 2D
  10. XGEVA [Suspect]
     Active Substance: DENOSUMAB
     Dosage: 120 MILLIGRAM/1,7ML, Q4WK
     Route: 058
  11. XGEVA [Suspect]
     Active Substance: DENOSUMAB
     Dosage: 120 MILLIGRAM/1,7ML, Q4WK
     Route: 058
  12. XGEVA [Suspect]
     Active Substance: DENOSUMAB
     Dosage: 120 MILLIGRAM/1,7ML, Q4WK
     Route: 058
  13. TRAVOPROST. [Concomitant]
     Active Substance: TRAVOPROST
     Dosage: 40 MICROGRAM PER MILLIGRAM (FL 2,5ML), QD 1D1DR
  14. CANNABIS [Concomitant]
     Active Substance: CANNABIS SATIVA SUBSP. INDICA TOP
     Dosage: 20 MILLIGRAM PER MILLILITRE, QD
  15. VASELINE CETOMACROGOL CREAM [Concomitant]
     Dosage: 10 PERCENT, 2XD

REACTIONS (8)
  - Cancer pain [Unknown]
  - Pain in extremity [Not Recovered/Not Resolved]
  - Arthralgia [Not Recovered/Not Resolved]
  - Arthralgia [Unknown]
  - Malaise [Unknown]
  - Dizziness [Unknown]
  - Injection site pain [Unknown]
  - Discomfort [Unknown]

NARRATIVE: CASE EVENT DATE: 2019
